FAERS Safety Report 5323823-3 (Version None)
Quarter: 2007Q2

REPORT INFORMATION
  Report Type: 
  Country: None (occurrence: None)
  Receive Date: 20070514
  Receipt Date: 20070503
  Transmission Date: 20071010
  Serious: Yes (Hospitalization)
  Sender: FDA-Public Use
  Company Number: B0469728A

PATIENT
  Age: 44 Year
  Sex: Male

DRUGS (7)
  1. TRACRIUM [Suspect]
     Route: 042
     Dates: start: 20070204, end: 20070211
  2. SALBUTAMOL [Suspect]
     Indication: ASTHMA
     Route: 042
     Dates: start: 20070204, end: 20070211
  3. SOLU-MEDROL [Concomitant]
     Route: 042
     Dates: start: 20070204
  4. SINGULAIR [Concomitant]
     Indication: ASTHMA
  5. SERETIDE [Concomitant]
     Indication: ASTHMA
  6. DESLORATADINE [Concomitant]
     Indication: ASTHMA
  7. VENTOLIN [Concomitant]
     Indication: ASTHMATIC CRISIS

REACTIONS (5)
  - BLOOD CREATINE PHOSPHOKINASE INCREASED [None]
  - DRUG INEFFECTIVE [None]
  - MUSCLE NECROSIS [None]
  - MYOGLOBIN URINE PRESENT [None]
  - RHABDOMYOLYSIS [None]
